FAERS Safety Report 5014647-5 (Version None)
Quarter: 2006Q2

REPORT INFORMATION
  Report Type: 
  Country: None (occurrence: None)
  Receive Date: 20060531
  Receipt Date: 20060306
  Transmission Date: 20061013
  Serious: Yes (Hospitalization)
  Sender: FDA-Public Use
  Company Number: FR-BRISTOL-MYERS SQUIBB COMPANY-13309026

PATIENT
  Age: 64 Year
  Sex: Female
  Weight: 63 kg

DRUGS (5)
  1. ABILIFY [Suspect]
     Indication: SCHIZOPHRENIA
     Dosage: 20 MG 03-MAY-05 TO 16-SEP-05; 15 MG 17-SEP-05 TO 21-FEB-06; 30 MG 21-FEB-06 TO 23-FEB-06
     Route: 048
     Dates: start: 20050503, end: 20060223
  2. TERCIAN [Suspect]
     Indication: AGITATION
     Route: 048
     Dates: start: 20060221
  3. TERCIAN [Suspect]
     Indication: DISSOCIATIVE DISORDER
     Route: 048
     Dates: start: 20060221
  4. LEVOTHYROX [Concomitant]
     Dates: start: 20050101
  5. SERESTA [Concomitant]

REACTIONS (3)
  - BLOOD CREATINE PHOSPHOKINASE INCREASED [None]
  - CONVULSION [None]
  - HYPERCHLORAEMIA [None]
